FAERS Safety Report 7880762-1 (Version None)
Quarter: 2011Q4

REPORT INFORMATION
  Report Type: 
  Country: None (occurrence: None)
  Receive Date: 20111101
  Receipt Date: 20111017
  Transmission Date: 20120403
  Serious: Yes (Hospitalization, Other)
  Sender: FDA-Public Use
  Company Number: CA-WATSON-2011-17449

PATIENT
  Age: 38 Year
  Sex: Male

DRUGS (1)
  1. VALPROATE SODIUM [Suspect]
     Indication: PRODUCT USED FOR UNKNOWN INDICATION

REACTIONS (3)
  - OVERDOSE [None]
  - LOSS OF CONSCIOUSNESS [None]
  - FALSE POSITIVE INVESTIGATION RESULT [None]
